FAERS Safety Report 22239415 (Version 1)
Quarter: 2023Q2

REPORT INFORMATION
  Report Type: Spontaneous
  Country: PL (occurrence: PL)
  Receive Date: 20230421
  Receipt Date: 20230421
  Transmission Date: 20230722
  Serious: Yes (Other)
  Sender: FDA-Public Use
  Company Number: PL-TEVA-2023-PL-2878362

PATIENT
  Sex: Male

DRUGS (4)
  1. NYSTATIN [Suspect]
     Active Substance: NYSTATIN
     Indication: Gastrointestinal mucormycosis
     Dosage: 500,000 IU ?2 TABLETS 4 TIMES DAILY
     Route: 065
     Dates: start: 2023
  2. MESTINON [Concomitant]
     Active Substance: PYRIDOSTIGMINE BROMIDE
     Indication: Myasthenia gravis
     Dosage: 4 X 60 MG
  3. METHYLPREDNISOLONE [Concomitant]
     Active Substance: METHYLPREDNISOLONE
     Indication: Myasthenia gravis
     Dosage: 4 TO 12 MG DAILY
  4. AMPICILLIN [Concomitant]
     Active Substance: AMPICILLIN
     Indication: Prostate infection
     Dates: start: 202303

REACTIONS (3)
  - Myasthenia gravis [Unknown]
  - Dysphagia [Unknown]
  - Muscular weakness [Unknown]

NARRATIVE: CASE EVENT DATE: 20230101
